FAERS Safety Report 24035624 (Version 1)
Quarter: 2024Q3

REPORT INFORMATION
  Report Type: Report from Study
  Country: US (occurrence: US)
  Receive Date: 20240701
  Receipt Date: 20240701
  Transmission Date: 20241017
  Serious: Yes (Hospitalization, Other)
  Sender: ALNYLAM PHARMACEUTICALS
  Company Number: US-ALNYLAM PHARMACEUTICALS, INC.-ALN-2024-003590

PATIENT

DRUGS (2)
  1. AMVUTTRA [Suspect]
     Active Substance: VUTRISIRAN
     Indication: Hereditary neuropathic amyloidosis
     Dosage: UNK
     Route: 065
     Dates: start: 20221202, end: 20221202
  2. AMVUTTRA [Suspect]
     Active Substance: VUTRISIRAN
     Dosage: UNK
     Route: 065
     Dates: start: 20240621, end: 20240621

REACTIONS (9)
  - Fall [Unknown]
  - Syncope [Unknown]
  - Dizziness [Unknown]
  - Mobility decreased [Unknown]
  - Pain [Unknown]
  - Unevaluable event [Unknown]
  - Hypoaesthesia [Unknown]
  - Muscle spasms [Unknown]
  - Therapeutic response shortened [Unknown]
